FAERS Safety Report 10414518 (Version 1)
Quarter: 2014Q3

REPORT INFORMATION
  Report Type: Report from Study
  Country: US (occurrence: US)
  Receive Date: 20140828
  Receipt Date: 20140828
  Transmission Date: 20150326
  Serious: Yes (Hospitalization)
  Sender: FDA-Public Use
  Company Number: US-BIOGENIDEC-2014BI087107

PATIENT
  Age: 67 Year
  Sex: Male

DRUGS (2)
  1. AVONEX [Concomitant]
     Active Substance: INTERFERON BETA-1A
     Indication: MULTIPLE SCLEROSIS
     Route: 030
     Dates: start: 20110614
  2. TYSABRI [Suspect]
     Active Substance: NATALIZUMAB
     Indication: MULTIPLE SCLEROSIS
     Route: 042
     Dates: start: 20140114

REACTIONS (4)
  - Musculoskeletal stiffness [Unknown]
  - Dysstasia [Unknown]
  - Muscle spasticity [Not Recovered/Not Resolved]
  - Ligament injury [Recovered/Resolved]

NARRATIVE: CASE EVENT DATE: 201401
